FAERS Safety Report 13165017 (Version 1)
Quarter: 2017Q1

REPORT INFORMATION
  Report Type: Report from Study
  Country: None (occurrence: AR)
  Receive Date: 20170130
  Receipt Date: 20170130
  Transmission Date: 20170428
  Serious: Yes (Hospitalization)
  Sender: FDA-Public Use
  Company Number: AR-ABBVIE-17P-007-1858264-00

PATIENT
  Age: 67 Year
  Sex: Male

DRUGS (1)
  1. ZEMPLAR [Suspect]
     Active Substance: PARICALCITOL
     Indication: HYPERPARATHYROIDISM SECONDARY
     Route: 042
     Dates: start: 20160111

REACTIONS (4)
  - Azotaemia [Unknown]
  - Abdominal pain upper [Recovering/Resolving]
  - Arteriovenous fistula site infection [Unknown]
  - Arteriovenous fistula occlusion [Recovering/Resolving]

NARRATIVE: CASE EVENT DATE: 20170115
